FAERS Safety Report 14291059 (Version 2)
Quarter: 2018Q1

REPORT INFORMATION
  Report Type: Spontaneous
  Country: US (occurrence: US)
  Receive Date: 20171215
  Receipt Date: 20180301
  Transmission Date: 20180509
  Serious: Yes (Hospitalization)
  Sender: FDA-Public Use
  Company Number: US-PFIZER INC-2017535146

PATIENT
  Age: 71 Year
  Sex: Female
  Weight: 50.34 kg

DRUGS (1)
  1. IBRANCE [Suspect]
     Active Substance: PALBOCICLIB
     Indication: BREAST CANCER METASTATIC
     Dosage: 100 MG, CYCLIC (DAY 1 - 21 EVERY 28 DAYS) (DAY 1-21 Q 28 DAYS)
     Route: 048
     Dates: start: 20170511

REACTIONS (6)
  - Atrial fibrillation [Unknown]
  - Alopecia [Unknown]
  - Blood pressure increased [Unknown]
  - Pneumonia [Unknown]
  - Night sweats [Unknown]
  - White blood cell count decreased [Unknown]

NARRATIVE: CASE EVENT DATE: 201711
